FAERS Safety Report 13350400 (Version 2)
Quarter: 2017Q2

REPORT INFORMATION
  Report Type: Report from Study
  Country: CA (occurrence: CA)
  Receive Date: 20170320
  Receipt Date: 20170421
  Transmission Date: 20170830
  Serious: Yes (Other)
  Sender: FDA-Public Use
  Company Number: CA-JNJFOC-20170312617

PATIENT
  Age: 16 Year
  Sex: Male
  Weight: 56.2 kg

DRUGS (4)
  1. REMICADE [Suspect]
     Active Substance: INFLIXIMAB
     Indication: CROHN^S DISEASE
     Dosage: 5 MG/KG
     Route: 042
     Dates: start: 20160601
  2. IRON [Concomitant]
     Active Substance: IRON
     Route: 065
  3. REMICADE [Suspect]
     Active Substance: INFLIXIMAB
     Indication: CROHN^S DISEASE
     Route: 042
     Dates: start: 20170310
  4. RANITIDINE. [Concomitant]
     Active Substance: RANITIDINE
     Route: 065

REACTIONS (3)
  - Crohn^s disease [Recovering/Resolving]
  - General physical health deterioration [Unknown]
  - Stomatitis [Unknown]

NARRATIVE: CASE EVENT DATE: 20170306
